FAERS Safety Report 6759360-9 (Version None)
Quarter: 2010Q2

REPORT INFORMATION
  Report Type: 
  Country: None (occurrence: None)
  Receive Date: 20100607
  Receipt Date: 20100526
  Transmission Date: 20101027
  Serious: Yes (Other)
  Sender: FDA-Public Use
  Company Number: ID-ELI_LILLY_AND_COMPANY-ID201004004749

PATIENT
  Age: 22 Year
  Sex: Male
  Weight: 50 kg

DRUGS (4)
  1. OLANZAPINE [Suspect]
     Indication: PARANOIA
     Dosage: 10 MG, DAILY (1/D)
     Route: 048
     Dates: start: 20100412, end: 20100412
  2. OLANZAPINE [Suspect]
     Dosage: 10 MG, DAILY (1/D)
     Dates: start: 20100417
  3. RISPERIDONE [Concomitant]
     Dosage: 4 MG, UNK
     Dates: start: 20100405
  4. TRIHEXYPHENIDYL HCL [Concomitant]
     Dosage: 2 D/F, UNK

REACTIONS (3)
  - BLOOD GLUCOSE DECREASED [None]
  - BLOOD PRESSURE DECREASED [None]
  - LOSS OF CONSCIOUSNESS [None]
